FAERS Safety Report 7460601-3 (Version None)
Quarter: 2011Q2

REPORT INFORMATION
  Report Type: 
  Country: None (occurrence: None)
  Receive Date: 20110505
  Receipt Date: 20110426
  Transmission Date: 20111010
  Serious: Yes (Death)
  Sender: FDA-Public Use
  Company Number: FR-PFIZER INC-2011094799

PATIENT
  Age: 79 Year
  Sex: Male

DRUGS (4)
  1. CORDARONE [Suspect]
     Dosage: 150MG, 4 DF, 1X/DAY
     Route: 042
     Dates: start: 20110208, end: 20110210
  2. TRIFLUCAN [Concomitant]
     Dosage: UNK
     Dates: start: 20110209, end: 20110210
  3. CORDARONE [Suspect]
     Indication: TACHYCARDIA
     Dosage: 200 MG, DAILY
     Route: 048
     Dates: start: 20110210, end: 20110211
  4. ZYVOX [Concomitant]
     Dosage: UNK
     Dates: start: 20110209, end: 20110210

REACTIONS (2)
  - PROTHROMBIN TIME SHORTENED [None]
  - HEPATOCELLULAR INJURY [None]
